FAERS Safety Report 10949425 (Version 1)
Quarter: 2015Q1

REPORT INFORMATION
  Report Type: Report from Study
  Country: AU (occurrence: AU)
  Receive Date: 20150324
  Receipt Date: 20150324
  Transmission Date: 20150721
  Serious: Yes (Other)
  Sender: FDA-Public Use
  Company Number: AU-SA-2014SA149427

PATIENT
  Age: 60 Year
  Sex: Female

DRUGS (7)
  1. AUBAGIO [Suspect]
     Active Substance: TERIFLUNOMIDE
     Route: 048
     Dates: start: 201410, end: 20141030
  2. ANTIDEPRESSANTS [Concomitant]
     Active Substance: UNSPECIFIED INGREDIENT
  3. AUBAGIO [Suspect]
     Active Substance: TERIFLUNOMIDE
     Dosage: DOSE: HALF TABLET
     Route: 048
  4. AUBAGIO [Suspect]
     Active Substance: TERIFLUNOMIDE
     Route: 048
     Dates: start: 201503
  5. NAPROSYN [Concomitant]
     Active Substance: NAPROXEN
  6. DIAZEPAM. [Concomitant]
     Active Substance: DIAZEPAM
  7. AVANZA [Concomitant]
     Active Substance: MIRTAZAPINE

REACTIONS (7)
  - Fall [Unknown]
  - Inappropriate schedule of drug administration [Unknown]
  - Lower limb fracture [Not Recovered/Not Resolved]
  - Diarrhoea [Unknown]
  - Wrong technique in drug usage process [Unknown]
  - Chills [Unknown]
  - Movement disorder [Not Recovered/Not Resolved]

NARRATIVE: CASE EVENT DATE: 20150207
